FAERS Safety Report 5358918-1 (Version None)
Quarter: 2007Q2

REPORT INFORMATION
  Report Type: 
  Country: None (occurrence: None)
  Receive Date: 20070615
  Receipt Date: 20070605
  Transmission Date: 20071010
  Serious: Yes (Hospitalization)
  Sender: FDA-Public Use
  Company Number: B0473899A

PATIENT
  Sex: Male
  Weight: 24 kg

DRUGS (3)
  1. LAMICTAL [Suspect]
     Indication: EPILEPSY
     Route: 048
  2. RIVOTRIL [Concomitant]
     Indication: EPILEPSY
     Dosage: 4DROP THREE TIMES PER DAY
     Route: 048
     Dates: start: 20030101
  3. EPITOMAX [Concomitant]
     Indication: EPILEPSY
     Dosage: 125MG PER DAY
     Route: 065
     Dates: start: 20030101

REACTIONS (5)
  - ERYTHEMA [None]
  - HAEMORRHAGIC URTICARIA [None]
  - OEDEMA [None]
  - RASH [None]
  - RASH PAPULAR [None]
